FAERS Safety Report 16907386 (Version 4)
Quarter: 2020Q4

REPORT INFORMATION
  Report Type: Spontaneous
  Country: NL (occurrence: NL)
  Receive Date: 20191011
  Receipt Date: 20201112
  Transmission Date: 20210113
  Serious: Yes (Other)
  Sender: FDA-Public Use
  Company Number: NL-TEVA-2019-NL-1119422

PATIENT
  Age: 50 Year
  Sex: Male
  Weight: 96 kg

DRUGS (2)
  1. LISINOPRIL TABLET 10MG / BRAND NAME NOT SPECIFIED [Suspect]
     Active Substance: LISINOPRIL
     Indication: HYPERTENSION
     Dosage: 10 MILLIGRAM DAILY; 1X A DAY 1
     Dates: start: 20190608
  2. METOPROLOL TABLET 50MG / BRAND NAME NOT SPECIFIED [Concomitant]
     Active Substance: LETROZOLE
     Dosage: 100 MILLIGRAM DAILY; ?1X A DAY 2
     Dates: end: 201908

REACTIONS (8)
  - Arrhythmia [Not Recovered/Not Resolved]
  - Anxiety [Recovered/Resolved]
  - Stress [Recovered/Resolved]
  - Malaise [Recovered/Resolved]
  - Nausea [Recovered/Resolved]
  - Dizziness [Recovered/Resolved]
  - Depressed mood [Recovered/Resolved]
  - Palpitations [Recovered/Resolved]

NARRATIVE: CASE EVENT DATE: 20190609
